FAERS Safety Report 8618903-0 (Version None)
Quarter: 2012Q3

REPORT INFORMATION
  Report Type: 
  Country: None (occurrence: None)
  Receive Date: 20120824
  Receipt Date: 20120820
  Transmission Date: 20120928
  Serious: Yes (Other)
  Sender: FDA-Public Use
  Company Number: FR-PFIZER INC-2012206069

PATIENT
  Age: 65 Year
  Sex: Male

DRUGS (6)
  1. CRESTOR [Concomitant]
  2. PLAVIX [Concomitant]
  3. ASPIRIN [Concomitant]
  4. PERINDOPRIL ERBUMINE [Concomitant]
  5. CORDARONE [Suspect]
     Dosage: UNK
     Route: 048
     Dates: start: 20090101, end: 20090801
  6. PRAXILENE [Concomitant]

REACTIONS (2)
  - HYPERTHYROIDISM [None]
  - THYROID DISORDER [None]
